FAERS Safety Report 23564876 (Version 1)
Quarter: 2024Q1

REPORT INFORMATION
  Report Type: Spontaneous
  Country: DE (occurrence: DE)
  Receive Date: 20240226
  Receipt Date: 20240226
  Transmission Date: 20240410
  Serious: Yes (Other)
  Sender: FDA-Public Use
  Company Number: None

PATIENT
  Age: 7 Year
  Sex: Male

DRUGS (1)
  1. ESTRADIOL [Suspect]
     Active Substance: ESTRADIOL
     Indication: Product used for unknown indication
     Dosage: UNK
     Route: 065

REACTIONS (5)
  - Epiphyses premature fusion [Recovering/Resolving]
  - Accidental exposure to product by child [Recovered/Resolved]
  - Pigmentation disorder [Unknown]
  - Skin odour abnormal [Unknown]
  - Gynaecomastia [Recovering/Resolving]
